FAERS Safety Report 18543901 (Version 1)
Quarter: 2020Q4

REPORT INFORMATION
  Report Type: Spontaneous
  Country: US (occurrence: US)
  Receive Date: 20201124
  Receipt Date: 20201124
  Transmission Date: 20210114
  Serious: No
  Sender: FDA-Public Use
  Company Number: US-ALEMBIC PHARMACUETICALS LIMITED-2020SCAL000496

PATIENT

DRUGS (6)
  1. DIAZEPAM. [Concomitant]
     Active Substance: DIAZEPAM
     Indication: ANXIETY
     Dosage: 10 MILLIGRAM, TID
     Route: 048
  2. TADALAFIL. [Suspect]
     Active Substance: TADALAFIL
     Indication: ERECTILE DYSFUNCTION
  3. MULTIVITAMIN ACTIVE MAN [Concomitant]
     Indication: NUTRITIONAL SUPPLEMENTATION
     Dosage: MENS DAILY MULTIVITAMINS, OD
     Route: 048
  4. DIAZEPAM. [Concomitant]
     Active Substance: DIAZEPAM
     Indication: DEPRESSION
  5. TADALAFIL. [Suspect]
     Active Substance: TADALAFIL
     Indication: PROSTATOMEGALY
     Dosage: 10 MILLIGRAM, OD (ROUND AND YELLOW PINKISH IN COLOR HAD 338 IMPRINT)
     Route: 048
     Dates: start: 20201012
  6. CALCIUM + D3 [CALCIUM;COLECALCIFEROL] [Concomitant]
     Indication: NUTRITIONAL SUPPLEMENTATION
     Dosage: ONCE A DAY
     Route: 048

REACTIONS (4)
  - Nocturia [Unknown]
  - Drug ineffective [Unknown]
  - Product substitution issue [Unknown]
  - Product commingling [Unknown]
